FAERS Safety Report 6827387-4 (Version None)
Quarter: 2010Q3

REPORT INFORMATION
  Report Type: 
  Country: None (occurrence: None)
  Receive Date: 20100709
  Receipt Date: 20070115
  Transmission Date: 20110219
  Serious: Yes (Other)
  Sender: FDA-Public Use
  Company Number: US-PFIZER INC-2007004225

PATIENT
  Sex: Male
  Weight: 83.9 kg

DRUGS (4)
  1. CHANTIX [Suspect]
     Indication: SMOKING CESSATION THERAPY
     Dates: start: 20060901, end: 20061228
  2. INSULIN [Concomitant]
  3. ADVAIR DISKUS 100/50 [Concomitant]
  4. MONTELUKAST [Concomitant]

REACTIONS (6)
  - APATHY [None]
  - DISTURBANCE IN ATTENTION [None]
  - HYPOGLYCAEMIA [None]
  - MALAISE [None]
  - SOMNOLENCE [None]
  - WITHDRAWAL SYNDROME [None]
